FAERS Safety Report 5122836-4 (Version None)
Quarter: 2006Q4

REPORT INFORMATION
  Report Type: 
  Country: None (occurrence: None)
  Receive Date: 20061004
  Receipt Date: 20061004
  Transmission Date: 20070319
  Serious: No
  Sender: FDA-Public Use
  Company Number: None

PATIENT
  Age: 42 Year
  Sex: Female
  Weight: 81.6475 kg

DRUGS (2)
  1. SEROQUEL [Suspect]
     Indication: INSOMNIA
     Dosage: WAS 50 THEN WENT TO 100
  2. SEROQUEL [Suspect]
     Indication: NERVOUS SYSTEM DISORDER
     Dosage: WAS 50 THEN WENT TO 100

REACTIONS (2)
  - UNEVALUABLE EVENT [None]
  - WEIGHT INCREASED [None]
